FAERS Safety Report 24141307 (Version 4)
Quarter: 2024Q3

REPORT INFORMATION
  Report Type: Spontaneous
  Country: CO (occurrence: CO)
  Receive Date: 20240726
  Receipt Date: 20240930
  Transmission Date: 20241016
  Serious: Yes (Other)
  Sender: REGENERON
  Company Number: CO-SA-2024SA213332

PATIENT
  Age: 64 Year
  Sex: Female

DRUGS (10)
  1. PRALUENT [Suspect]
     Active Substance: ALIROCUMAB
     Indication: Single functional kidney
     Dosage: 75 MG, QOW
     Route: 058
     Dates: start: 20240424
  2. PRALUENT [Suspect]
     Active Substance: ALIROCUMAB
     Indication: Renal disorder prophylaxis
  3. ASPIRIN [Concomitant]
     Active Substance: ASPIRIN
     Indication: Cardiovascular disorder
     Dosage: 1 DF; QD
     Route: 048
  4. ROSUVASTATIN [Concomitant]
     Active Substance: ROSUVASTATIN\ROSUVASTATIN CALCIUM
     Indication: Product used for unknown indication
     Dosage: 1 DF; QD
     Route: 048
  5. ROSUVASTATIN [Concomitant]
     Active Substance: ROSUVASTATIN\ROSUVASTATIN CALCIUM
     Indication: Blood cholesterol increased
  6. VITAMIN D3 [Concomitant]
     Active Substance: CHOLECALCIFEROL
     Indication: Product used for unknown indication
     Dosage: 1 DF; QD
     Route: 048
  7. ZOLEDRONIC ACID [Concomitant]
     Active Substance: ZOLEDRONIC ACID
     Indication: Product used for unknown indication
     Dosage: 5MG
  8. ZOLEDRONIC ACID [Concomitant]
     Active Substance: ZOLEDRONIC ACID
     Indication: Osteoporosis
     Dosage: 5 MG 1 DOSE EVERY 1 CYCLIC
     Route: 042
  9. CALCIUM [Concomitant]
     Active Substance: CALCIUM
     Indication: Product used for unknown indication
     Dosage: 1 DF; QD
  10. CALCIUM CITRATE\VITAMIN D [Concomitant]
     Active Substance: CALCIUM CITRATE\VITAMIN D
     Dosage: 1 DF, QD
     Route: 048

REACTIONS (6)
  - Retinal detachment [Not Recovered/Not Resolved]
  - Eye infection [Not Recovered/Not Resolved]
  - Dizziness [Not Recovered/Not Resolved]
  - Headache [Not Recovered/Not Resolved]
  - Nausea [Not Recovered/Not Resolved]
  - Product use in unapproved indication [Unknown]

NARRATIVE: CASE EVENT DATE: 20240424
